FAERS Safety Report 9240555 (Version 2)
Quarter: 2013Q2

REPORT INFORMATION
  Report Type: Spontaneous
  Country: US (occurrence: None)
  Receive Date: 20130417
  Receipt Date: 20130605
  Transmission Date: 20140414
  Serious: No
  Sender: FDA-Public Use
  Company Number: AEUSA201200239

PATIENT
  Age: 41 Year
  Sex: Male
  Weight: 58.06 kg

DRUGS (4)
  1. GAMASTAN [Suspect]
     Indication: EPSTEIN-BARR VIRUS INFECTION
     Route: 058
     Dates: start: 20120419, end: 20120505
  2. GAMASTAN [Suspect]
     Indication: CYTOMEGALOVIRUS INFECTION
     Route: 058
     Dates: start: 20120419, end: 20120505
  3. GAMASTAN [Suspect]
     Indication: HUMAN HERPESVIRUS 6 INFECTION
     Route: 058
     Dates: start: 20120419, end: 20120505
  4. GAMASTAN [Suspect]
     Indication: LYME DISEASE
     Route: 058
     Dates: start: 20120419, end: 20120505

REACTIONS (3)
  - Fatigue [None]
  - Pain [None]
  - Drug administration error [None]
